FAERS Safety Report 8959527 (Version 2)
Quarter: 2013Q2

REPORT INFORMATION
  Report Type: Report from Study
  Country: JP (occurrence: JP)
  Receive Date: 20121211
  Receipt Date: 20130610
  Transmission Date: 20140414
  Serious: Yes (Other)
  Sender: FDA-Public Use
  Company Number: JP-VERTEX PHARMACEUTICALS INC.-2012-025865

PATIENT
  Age: 58 Year
  Sex: Female

DRUGS (15)
  1. REBETOL [Suspect]
     Dosage: 400 MG, QD
     Route: 048
     Dates: start: 20121031, end: 20121128
  2. PEGINTRON [Suspect]
     Indication: CHRONIC HEPATITIS C
     Dosage: 1.1 ?G/KG, QW
     Route: 058
     Dates: start: 20120613, end: 20120613
  3. PEGINTRON [Suspect]
     Dosage: 0.42 ?G/KG, QW
     Route: 058
     Dates: start: 20120620, end: 20120620
  4. PEGINTRON [Suspect]
     Dosage: 1.10 ?G/KG, QW
     Route: 058
     Dates: start: 20120627, end: 20120627
  5. PEGINTRON [Suspect]
     Dosage: 0.49 ?G/KG, QW
     Route: 058
     Dates: start: 20120704, end: 20120704
  6. PEGINTRON [Suspect]
     Dosage: 0.97 ?G/KG, QW
     Route: 058
     Dates: start: 20120711, end: 20120711
  7. PEGINTRON [Suspect]
     Dosage: 0.49 ?G/KG, QW
     Route: 058
     Dates: start: 20120718, end: 20120725
  8. PEGINTRON [Suspect]
     Dosage: 0.97 ?G/KG, QW
     Route: 058
     Dates: end: 20120801
  9. PEGINTRON [Suspect]
     Dosage: 0.49 ?G/KG, QW
     Route: 058
     Dates: start: 20120808, end: 20121012
  10. PEGINTRON [Suspect]
     Dosage: 0.56 ?G/KG, QW
     Route: 058
     Dates: start: 20121019, end: 20121121
  11. CLARITIN [Concomitant]
     Dosage: 10 MG, QD
     Route: 048
     Dates: start: 20120613, end: 20121003
  12. SNMC [Concomitant]
     Dosage: 60 ML, QD
     Route: 042
  13. VX-950 (TELAPREVIR) [Suspect]
     Indication: CHRONIC HEPATITIS C
     Dosage: 1500 MG, QD
     Route: 048
     Dates: start: 20120613, end: 20120904
  14. REBETOL [Suspect]
     Indication: CHRONIC HEPATITIS C
     Dosage: 400 MG, QD
     Route: 048
     Dates: start: 20120613, end: 20120626
  15. REBETOL [Suspect]
     Dosage: 200 MG, QD
     Route: 048
     Dates: start: 20120627, end: 20121030

REACTIONS (1)
  - Neutrophil count decreased [Recovered/Resolved]
